FAERS Safety Report 26203446 (Version 1)
Quarter: 2025Q4

REPORT INFORMATION
  Report Type: Spontaneous
  Country: CN (occurrence: CN)
  Receive Date: 20251226
  Receipt Date: 20251226
  Transmission Date: 20260117
  Serious: Yes (Other)
  Sender: BAXTER
  Company Number: None

PATIENT
  Age: 64 Year
  Sex: Female
  Weight: 52 kg

DRUGS (4)
  1. IFOSFAMIDE [Suspect]
     Active Substance: IFOSFAMIDE
     Indication: Breast cancer female
     Dosage: 900 MG, QD
     Route: 041
     Dates: start: 20251116, end: 20251116
  2. PIRARUBICIN HYDROCHLORIDE [Suspect]
     Active Substance: PIRARUBICIN HYDROCHLORIDE
     Indication: Breast cancer female
     Dosage: 80 MG, QD
     Route: 041
     Dates: start: 20251116, end: 20251116
  3. SODIUM CHLORIDE [Suspect]
     Active Substance: SODIUM CHLORIDE
     Indication: Medication dilution
     Dosage: 250 ML, QD
     Route: 041
     Dates: start: 20251116, end: 20251116
  4. DEXTROSE [Suspect]
     Active Substance: DEXTROSE MONOHYDRATE
     Indication: Medication dilution
     Dosage: 250 ML, QD
     Route: 041
     Dates: start: 20251116, end: 20251116

REACTIONS (15)
  - Cardiac failure acute [Unknown]
  - Cardiac tamponade [Unknown]
  - Hypovolaemic shock [Unknown]
  - Pleural infection [Unknown]
  - Pericardial haemorrhage [Unknown]
  - Thoracic haemorrhage [Unknown]
  - Adenocarcinoma metastatic [Unknown]
  - Breast cancer metastatic [Unknown]
  - Myelosuppression [Recovering/Resolving]
  - Platelet count decreased [Unknown]
  - Pericardial effusion [Unknown]
  - Pneumonia [Unknown]
  - Spontaneous haemorrhage [Unknown]
  - General physical health deterioration [Unknown]
  - Pleural effusion [Unknown]

NARRATIVE: CASE EVENT DATE: 20251124
